FAERS Safety Report 8965739 (Version 1)
Quarter: 2012Q4

REPORT INFORMATION
  Report Type: Spontaneous
  Country: AU (occurrence: None)
  Receive Date: 20121204
  Receipt Date: 20121204
  Transmission Date: 20130627
  Serious: Yes (Hospitalization, Disabling)
  Sender: FDA-Public Use
  Company Number: AU-1195508

PATIENT
  Age: 78 Year
  Sex: Female

DRUGS (1)
  1. MAXIDEX [Suspect]
     Route: 047

REACTIONS (7)
  - Corneal perforation [None]
  - Corneal abscess [None]
  - Keratitis herpetic [None]
  - Condition aggravated [None]
  - Flat anterior chamber of eye [None]
  - Corneal thinning [None]
  - Pyrexia [None]
